FAERS Safety Report 9834027 (Version 2)
Quarter: 2014Q1

REPORT INFORMATION
  Report Type: Spontaneous
  Country: BR (occurrence: BR)
  Receive Date: 20140122
  Receipt Date: 20140128
  Transmission Date: 20141002
  Serious: Yes (Other)
  Sender: FDA-Public Use
  Company Number: BR-AMGEN-BRASP2014003992

PATIENT
  Age: 50 Year
  Sex: Female
  Weight: 68 kg

DRUGS (17)
  1. ENBREL [Suspect]
     Indication: RHEUMATOID ARTHRITIS
     Dosage: 25 MG, 2 TIMES/WK
     Route: 058
     Dates: start: 201309
  2. ENBREL [Suspect]
     Dosage: UNK
     Route: 065
     Dates: start: 201310
  3. ENBREL [Suspect]
     Dosage: 50 MG, ONCE WEEKLY
     Route: 058
     Dates: start: 201312
  4. ENBREL [Suspect]
     Dosage: STRENGTH 25MG
     Route: 058
     Dates: start: 20140114
  5. ARAVA [Concomitant]
     Dosage: 1 TABLET (20 MG), 1X/DAY
     Route: 048
  6. FLUOXETINE [Concomitant]
     Dosage: 3 TABLETS OF 20MG (60 MG), 1X/DAY
     Route: 048
  7. DIPIRONE [Concomitant]
     Dosage: 3 TABLETS OF 500MG (1500 MG), 3X/DAY
     Route: 048
  8. OMEPRAZOLE [Concomitant]
     Dosage: 2 TABLETS OF 20MG (40 MG), 1X/DAY
     Route: 048
  9. PREDNISONE [Concomitant]
     Dosage: 1 TABLET OF 5 MG, 3X/DAY
     Route: 048
  10. DIAZEPAM [Concomitant]
     Dosage: STRENGTH10 MG, ONCE DAILY
     Route: 048
  11. DIAZEPAM [Concomitant]
     Dosage: UNK
  12. HYDROCHLOROTHIAZIDE [Concomitant]
     Dosage: 3 TABLETS OF 100MG (300 MG), 1X/DAY
     Route: 048
  13. AMITRIPTYLINE [Concomitant]
     Dosage: STRENGTH 25 MG, ONCE DAILY
     Route: 048
  14. AMITRIPTYLINE [Concomitant]
     Dosage: 25 UNK, UNK
  15. AMYTRIL [Concomitant]
     Dosage: STRENGTH 25 MG
  16. ISONIAZIDE [Concomitant]
     Dosage: STRENGTH 100 MG
  17. FOLIC ACID [Concomitant]
     Dosage: STRENGTH 10MG

REACTIONS (8)
  - Hypertensive crisis [Unknown]
  - Product name confusion [Not Recovered/Not Resolved]
  - Drug dispensing error [Not Recovered/Not Resolved]
  - Rash macular [Unknown]
  - Pruritus [Unknown]
  - Wrong technique in drug usage process [Unknown]
  - Injection site erythema [Unknown]
  - Injection site pruritus [Unknown]
